FAERS Safety Report 16641239 (Version 1)
Quarter: 2019Q3

REPORT INFORMATION
  Report Type: Spontaneous
  Country: DE (occurrence: DE)
  Receive Date: 20190729
  Receipt Date: 20190729
  Transmission Date: 20191004
  Serious: Yes (Other)
  Sender: FDA-Public Use
  Company Number: DE-B.I. PHARMACEUTICALS,INC./RIDGEFIELD-2019-12-002319

PATIENT
  Age: 55 Year
  Sex: Female

DRUGS (9)
  1. VARGATEF [Suspect]
     Active Substance: NINTEDANIB
     Dosage: UNK,
     Route: 065
     Dates: start: 201906
  2. VARGATEF [Suspect]
     Active Substance: NINTEDANIB
     Indication: PRODUCT USED FOR UNKNOWN INDICATION
     Dosage: UNK UNK, CYCLICAL
     Route: 065
     Dates: start: 201905
  3. TAXOTERE [Suspect]
     Active Substance: DOCETAXEL
     Indication: PRODUCT USED FOR UNKNOWN INDICATION
     Dosage: UNK UNK, CYCLICAL
     Route: 065
     Dates: start: 201905
  4. PEMBROLIZUMAB. [Suspect]
     Active Substance: PEMBROLIZUMAB
     Indication: ADENOCARCINOMA
     Dosage: UNK, POWDER FOR INJECTION
     Route: 065
     Dates: start: 2018
  5. VARGATEF [Suspect]
     Active Substance: NINTEDANIB
     Dosage: UNK, CYCLICAL
     Route: 065
     Dates: start: 201906
  6. TAXOTERE [Suspect]
     Active Substance: DOCETAXEL
     Dosage: UNK, CYCLICAL
     Route: 065
     Dates: start: 201906
  7. TAXOTERE [Suspect]
     Active Substance: DOCETAXEL
     Dosage: UNK, CYCLICAL
     Route: 065
     Dates: start: 201906
  8. ALIMTA [Concomitant]
     Active Substance: PEMETREXED DISODIUM
     Indication: PRODUCT USED FOR UNKNOWN INDICATION
     Route: 065
  9. CISPLATIN. [Concomitant]
     Active Substance: CISPLATIN
     Indication: PRODUCT USED FOR UNKNOWN INDICATION
     Dosage: UNK
     Route: 065
     Dates: start: 2018

REACTIONS (8)
  - Pulmonary embolism [Unknown]
  - Vomiting [Unknown]
  - Dyspnoea [Unknown]
  - Liver function test increased [Unknown]
  - Malignant neoplasm progression [Unknown]
  - Drug hypersensitivity [Unknown]
  - Haemoptysis [Unknown]
  - Chromosome analysis abnormal [Unknown]

NARRATIVE: CASE EVENT DATE: 2019
